FAERS Safety Report 8818978 (Version 1)
Quarter: 2012Q4

REPORT INFORMATION
  Report Type: 
  Country: US (occurrence: US)
  Receive Date: 20121001
  Receipt Date: 20121001
  Transmission Date: 20130627
  Serious: Yes (Other)
  Sender: FDA-Public Use
  Company Number: PHEH2012US018721

PATIENT
  Sex: Female

DRUGS (2)
  1. DIOVAN [Suspect]
     Indication: HYPERTENSION
     Dosage: 2 DF (320 mg), daily
  2. DIOVAN [Suspect]
     Dosage: 1 DF (320 mg), daily
     Route: 048

REACTIONS (4)
  - Ovarian cyst [Unknown]
  - Wrong technique in drug usage process [Unknown]
  - Blood pressure inadequately controlled [Unknown]
  - Headache [Unknown]
